FAERS Safety Report 25457795 (Version 1)
Quarter: 2025Q2

REPORT INFORMATION
  Report Type: Report from Study
  Country: CA (occurrence: CA)
  Receive Date: 20250619
  Receipt Date: 20250619
  Transmission Date: 20250717
  Serious: Yes (Hospitalization, Other)
  Sender: TAKEDA
  Company Number: CA-TAKEDA-2025TUS055933

PATIENT
  Sex: Male

DRUGS (14)
  1. VEDOLIZUMAB [Suspect]
     Active Substance: VEDOLIZUMAB
     Indication: Colitis ulcerative
  2. APIXABAN [Concomitant]
     Active Substance: APIXABAN
     Dosage: 5 MILLIGRAM, BID
     Dates: start: 20241104
  3. CANDESARTAN [Concomitant]
     Active Substance: CANDESARTAN
  4. RABEPRAZOLE [Concomitant]
     Active Substance: RABEPRAZOLE
  5. ATORVASTATIN [Concomitant]
     Active Substance: ATORVASTATIN
  6. JARDIANCE [Concomitant]
     Active Substance: EMPAGLIFLOZIN
  7. IRON [Concomitant]
     Active Substance: IRON
  8. MAGNESIUM [Concomitant]
     Active Substance: MAGNESIUM
  9. ALLOPURINOL [Concomitant]
     Active Substance: ALLOPURINOL
  10. METOLAZONE [Concomitant]
     Active Substance: METOLAZONE
  11. METOPROLOL [Concomitant]
     Active Substance: METOPROLOL
  12. TYLENOL [Concomitant]
     Active Substance: ACETAMINOPHEN
  13. OZEMPIC [Concomitant]
     Active Substance: SEMAGLUTIDE
  14. LASIX [Concomitant]
     Active Substance: FUROSEMIDE

REACTIONS (2)
  - Cardiac failure congestive [Unknown]
  - Renal disorder [Unknown]
